FAERS Safety Report 7443178-8 (Version None)
Quarter: 2011Q2

REPORT INFORMATION
  Report Type: 
  Country: None (occurrence: None)
  Receive Date: 20110428
  Receipt Date: 20110421
  Transmission Date: 20111010
  Serious: Yes (Other)
  Sender: FDA-Public Use
  Company Number: A0924792A

PATIENT
  Age: 34 Year
  Sex: Female

DRUGS (2)
  1. REQUIP XL [Suspect]
     Dosage: 2MG UNKNOWN
     Route: 048
     Dates: start: 20090501
  2. ADVAIR DISKUS 100/50 [Suspect]
     Route: 055
     Dates: start: 20090501

REACTIONS (2)
  - SUICIDAL IDEATION [None]
  - MENTAL IMPAIRMENT [None]
